FAERS Safety Report 10729132 (Version 1)
Quarter: 2015Q1

REPORT INFORMATION
  Report Type: Spontaneous
  Country: US (occurrence: None)
  Receive Date: 20150120
  Receipt Date: 20150120
  Transmission Date: 20150721
  Serious: Yes (Life-Threatening, Disabling, Other)
  Sender: FDA-Public Use
  Company Number: None

PATIENT
  Age: 61 Year
  Sex: Female
  Weight: 86.18 kg

DRUGS (1)
  1. GABAPENTIN 300MG [Suspect]
     Active Substance: GABAPENTIN
     Indication: NERVE COMPRESSION
     Dosage: 1, 1 NIGHT
     Route: 048

REACTIONS (9)
  - Loss of consciousness [None]
  - Vomiting [None]
  - Balance disorder [None]
  - Asthenia [None]
  - Fatigue [None]
  - Vision blurred [None]
  - Peripheral swelling [None]
  - Fall [None]
  - Myocardial infarction [None]

NARRATIVE: CASE EVENT DATE: 20141031
